FAERS Safety Report 7985137-2 (Version None)
Quarter: 2011Q4

REPORT INFORMATION
  Report Type: 
  Country: None (occurrence: None)
  Receive Date: 20111216
  Receipt Date: 20111205
  Transmission Date: 20120403
  Serious: Yes (Hospitalization, Other)
  Sender: FDA-Public Use
  Company Number: PHHY2011FR96950

PATIENT
  Sex: Female
  Weight: 72 kg

DRUGS (5)
  1. CLONAZEPAM [Concomitant]
     Dosage: 6 MG, DAILY
     Route: 048
     Dates: start: 20070101
  2. CLOZAPINE [Suspect]
     Indication: SCHIZOPHRENIA
     Dosage: 500 MG, DAILY
     Route: 048
     Dates: start: 20050101
  3. DEPAKOTE [Concomitant]
     Dosage: 750 MG, DAILY
     Route: 048
     Dates: start: 20060101
  4. TERCIAN [Concomitant]
     Dosage: 75 MG, DAILY
     Route: 048
     Dates: start: 20091102
  5. DIPIPERON [Concomitant]
     Dosage: 80 MG, DAILY
     Route: 048
     Dates: start: 20060101

REACTIONS (3)
  - PYREXIA [None]
  - RESPIRATORY DISORDER [None]
  - LUNG DISORDER [None]
